FAERS Safety Report 4268692-8 (Version None)
Quarter: 2004Q1

REPORT INFORMATION
  Report Type: 
  Country: None (occurrence: None)
  Receive Date: 20040108
  Receipt Date: 20031218
  Transmission Date: 20041129
  Serious: Yes (Other)
  Sender: FDA-Public Use
  Company Number: 2003191532US

PATIENT
  Age: 8 Year
  Sex: Male

DRUGS (1)
  1. DELTASONE [Suspect]
     Dosage: 1 MG/KG, QD

REACTIONS (8)
  - CATAPLEXY [None]
  - CLUMSINESS [None]
  - DRUG INEFFECTIVE [None]
  - HALLUCINATION, AUDITORY [None]
  - INCREASED APPETITE [None]
  - MUSCLE TWITCHING [None]
  - NARCOLEPSY [None]
  - WEIGHT INCREASED [None]
